FAERS Safety Report 15215413 (Version 1)
Quarter: 2018Q3

REPORT INFORMATION
  Report Type: Spontaneous
  Country: JP (occurrence: JP)
  Receive Date: 20180730
  Receipt Date: 20180730
  Transmission Date: 20181010
  Serious: Yes (Other)
  Sender: FDA-Public Use
  Company Number: JP-SA-2018SA197000

PATIENT
  Age: 81 Year
  Sex: Female

DRUGS (4)
  1. CRESTOR [Concomitant]
     Active Substance: ROSUVASTATIN CALCIUM
     Indication: PRODUCT USED FOR UNKNOWN INDICATION
     Route: 048
  2. QUETIAPINE. [Concomitant]
     Active Substance: QUETIAPINE
     Indication: INSOMNIA
     Route: 048
  3. DREWELL [Suspect]
     Active Substance: DIPHENHYDRAMINE HYDROCHLORIDE
     Indication: INSOMNIA
     Dosage: 1 DF, 1X
     Route: 048
     Dates: start: 201807, end: 201807
  4. DREWELL [Suspect]
     Active Substance: DIPHENHYDRAMINE HYDROCHLORIDE
     Dosage: 0.5 DF, QD
     Route: 048
     Dates: start: 201807, end: 201807

REACTIONS (8)
  - Altered state of consciousness [Recovered/Resolved]
  - Judgement impaired [Recovered/Resolved]
  - Disturbance in attention [Recovered/Resolved]
  - Vomiting [Recovered/Resolved]
  - Nausea [Recovered/Resolved]
  - Feeling abnormal [Recovered/Resolved]
  - Language disorder [Recovered/Resolved]
  - Parasomnia [Recovered/Resolved]

NARRATIVE: CASE EVENT DATE: 201807
